FAERS Safety Report 20179475 (Version 1)
Quarter: 2021Q4

REPORT INFORMATION
  Report Type: Spontaneous
  Country: SE (occurrence: SE)
  Receive Date: 20211214
  Receipt Date: 20211214
  Transmission Date: 20220303
  Serious: Yes (Hospitalization)
  Sender: FDA-Public Use
  Company Number: SE-ABBVIE-21K-150-4196902-00

PATIENT
  Age: 24 Month
  Sex: Male

DRUGS (2)
  1. VALPROIC ACID [Suspect]
     Active Substance: VALPROIC ACID
     Indication: Epilepsy
     Route: 048
     Dates: start: 19980218, end: 19980506
  2. CARBAMAZEPINE [Suspect]
     Active Substance: CARBAMAZEPINE
     Indication: Epilepsy
     Route: 048
     Dates: start: 19980506, end: 199812

REACTIONS (2)
  - Aplastic anaemia [Recovered/Resolved]
  - Erythropoiesis abnormal [Unknown]

NARRATIVE: CASE EVENT DATE: 19980506
